FAERS Safety Report 7862372-5 (Version None)
Quarter: 2011Q4

REPORT INFORMATION
  Report Type: 
  Country: None (occurrence: None)
  Receive Date: 20111027
  Receipt Date: 20111017
  Transmission Date: 20120403
  Serious: Yes (Congenital Anomaly)
  Sender: FDA-Public Use
  Company Number: US-GILEAD-2011-0045542

PATIENT
  Sex: Female

DRUGS (4)
  1. RETROVIR [Concomitant]
     Indication: HIV INFECTION
  2. REYATAZ [Concomitant]
     Indication: HIV INFECTION
     Dosage: UNK
     Dates: start: 20110728, end: 20110728
  3. EMTRICITABINE/TENOFOVIR DISOPROXIL FUMARATE [Suspect]
     Indication: HIV INFECTION
     Dosage: UNK
  4. NORVIR [Concomitant]
     Indication: HIV INFECTION

REACTIONS (1)
  - NEURAL TUBE DEFECT [None]
